FAERS Safety Report 7242670-9 (Version None)
Quarter: 2011Q1

REPORT INFORMATION
  Report Type: 
  Country: None (occurrence: None)
  Receive Date: 20110118
  Receipt Date: 20110104
  Transmission Date: 20110831
  Serious: Yes (Death, Life-Threatening, Hospitalization, Other)
  Sender: FDA-Public Use
  Company Number: 2010P1001926

PATIENT
  Age: 80 Year
  Sex: Female

DRUGS (6)
  1. ENALAPRIL MALEATE [Concomitant]
  2. AMIODARONE [Concomitant]
  3. FUROSEMIDE [Concomitant]
  4. BLINDED STUDY DRUG (DU-176B OR WARFARIN) (NO PREF. NAME) [Suspect]
     Indication: THROMBOSIS PROPHYLAXIS
     Dosage: QD;PO
     Route: 048
     Dates: start: 20091203, end: 20100317
  5. SPIRONOLACTONE [Concomitant]
  6. CARVEDILOL [Concomitant]

REACTIONS (8)
  - CREATININE RENAL CLEARANCE ABNORMAL [None]
  - COLON NEOPLASM [None]
  - COMA [None]
  - SEPTIC SHOCK [None]
  - TUMOUR HAEMORRHAGE [None]
  - CARDIO-RESPIRATORY ARREST [None]
  - ANAEMIA [None]
  - CONDITION AGGRAVATED [None]
